FAERS Safety Report 7471807-1 (Version None)
Quarter: 2011Q2

REPORT INFORMATION
  Report Type: 
  Country: None (occurrence: None)
  Receive Date: 20110511
  Receipt Date: 20100507
  Transmission Date: 20111010
  Serious: No
  Sender: FDA-Public Use
  Company Number: A0860096A

PATIENT
  Age: 62 Year
  Sex: Male

DRUGS (2)
  1. FEMARA [Concomitant]
     Dates: start: 20100413
  2. TYKERB [Suspect]
     Indication: BREAST CANCER
     Dosage: 1000MG PER DAY
     Route: 065
     Dates: start: 20100504

REACTIONS (5)
  - FATIGUE [None]
  - DIARRHOEA [None]
  - DECREASED APPETITE [None]
  - HEADACHE [None]
  - NAUSEA [None]
